FAERS Safety Report 21077092 (Version 1)
Quarter: 2022Q3

REPORT INFORMATION
  Report Type: Spontaneous
  Country: US (occurrence: None)
  Receive Date: 20220713
  Receipt Date: 20220713
  Transmission Date: 20221026
  Serious: Yes (Death, Life-Threatening, Disabling)
  Sender: FDA-Public Use
  Company Number: None

PATIENT
  Age: 46 Year
  Sex: Female

DRUGS (2)
  1. CIPROFLOXACIN [Suspect]
     Active Substance: CIPROFLOXACIN
     Indication: Urinary tract infection
     Dates: start: 20171217, end: 20171221
  2. XANAX [Concomitant]
     Active Substance: ALPRAZOLAM

REACTIONS (12)
  - Anxiety [None]
  - Depression [None]
  - Tinnitus [None]
  - Pain [None]
  - Vision blurred [None]
  - Insomnia [None]
  - Palpitations [None]
  - Disturbance in attention [None]
  - Amnesia [None]
  - Impaired work ability [None]
  - Loss of personal independence in daily activities [None]
  - Completed suicide [None]

NARRATIVE: CASE EVENT DATE: 20181217
